FAERS Safety Report 11398899 (Version 1)
Quarter: 2015Q3

REPORT INFORMATION
  Report Type: Report from Study
  Country: GB (occurrence: GB)
  Receive Date: 20150820
  Receipt Date: 20150820
  Transmission Date: 20151125
  Serious: Yes (Other)
  Sender: FDA-Public Use
  Company Number: GB-AMGEN-GBRSL2015083539

PATIENT
  Age: 30 Year
  Sex: Male

DRUGS (1)
  1. ARANESP [Suspect]
     Active Substance: DARBEPOETIN ALFA
     Indication: PRODUCT USED FOR UNKNOWN INDICATION
     Dosage: 40 MUG, EVERY 10 DAYS
     Route: 065

REACTIONS (2)
  - Intentional product misuse [Unknown]
  - Transplant [Unknown]

NARRATIVE: CASE EVENT DATE: 201507
